FAERS Safety Report 6740826-2 (Version None)
Quarter: 2010Q2

REPORT INFORMATION
  Report Type: 
  Country: None (occurrence: None)
  Receive Date: 20100525
  Receipt Date: 20100525
  Transmission Date: 20101027
  Serious: No
  Sender: FDA-Public Use
  Company Number: None

PATIENT
  Sex: Male
  Weight: 95.2554 kg

DRUGS (1)
  1. HUMIRA [Suspect]
     Indication: ANKYLOSING SPONDYLITIS
     Dosage: BI-WEEKLY
     Dates: start: 20091102, end: 20100505

REACTIONS (7)
  - BALANCE DISORDER [None]
  - GAIT DISTURBANCE [None]
  - JOINT RANGE OF MOTION DECREASED [None]
  - JOINT SWELLING [None]
  - MUSCLE SPASMS [None]
  - MUSCULAR WEAKNESS [None]
  - PARAESTHESIA [None]
